FAERS Safety Report 9257469 (Version 3)
Quarter: 2014Q1

REPORT INFORMATION
  Report Type: Spontaneous
  Country: US (occurrence: None)
  Receive Date: 20121212
  Receipt Date: 20130729
  Transmission Date: 20141002
  Serious: No
  Sender: FDA-Public Use
  Company Number: 1208USA003421

PATIENT
  Age: 55 Year
  Sex: Male
  Weight: 73.9 kg

DRUGS (3)
  1. VICTRELIS [Suspect]
     Indication: HEPATITIS C
     Dates: start: 20120627, end: 20121129
  2. RIBAVIRIN [Suspect]
     Indication: HEPATITIS C
     Dates: start: 20120530, end: 20121206
  3. PEGASYS (PEGINTERFERON ALFA-2A) [Suspect]
     Indication: HEPATITIS C
     Dates: start: 20120530, end: 20121129

REACTIONS (37)
  - Influenza [None]
  - Social avoidant behaviour [None]
  - Skin reaction [None]
  - Breath odour [None]
  - Night sweats [None]
  - Appetite disorder [None]
  - Memory impairment [None]
  - Musculoskeletal discomfort [None]
  - Dyspnoea [None]
  - Anger [None]
  - Disturbance in attention [None]
  - Body temperature increased [None]
  - Dysphonia [None]
  - Depression [None]
  - Weight decreased [None]
  - Chills [None]
  - Asthenia [None]
  - Chills [None]
  - Diarrhoea [None]
  - Rash [None]
  - Dysgeusia [None]
  - Decreased appetite [None]
  - Diarrhoea [None]
  - Decreased appetite [None]
  - Breath odour [None]
  - Anaemia [None]
  - Diarrhoea [None]
  - Skin disorder [None]
  - Infection [None]
  - Decreased appetite [None]
  - Dysgeusia [None]
  - Fatigue [None]
  - Anaemia [None]
  - Mental impairment [None]
  - Skin infection [None]
  - Fatigue [None]
  - Nausea [None]
